FAERS Safety Report 5926130-0 (Version None)
Quarter: 2008Q4

REPORT INFORMATION
  Report Type: 
  Country: None (occurrence: None)
  Receive Date: 20081016
  Receipt Date: 20081007
  Transmission Date: 20090506
  Serious: Yes (Other)
  Sender: FDA-Public Use
  Company Number: TUK2008A00124

PATIENT
  Age: 68 Year
  Sex: Male

DRUGS (3)
  1. ACTOS [Suspect]
     Indication: DIABETES MELLITUS
     Dosage: 15 MG ORAL
     Route: 048
     Dates: start: 20080707, end: 20080907
  2. GLICLAZIDE (GLICLAZIDE) [Concomitant]
  3. SIMVASTATIN [Concomitant]

REACTIONS (3)
  - FLUID RETENTION [None]
  - HYPERTENSION [None]
  - OEDEMA PERIPHERAL [None]
